FAERS Safety Report 22314782 (Version 1)
Quarter: 2023Q2

REPORT INFORMATION
  Report Type: Spontaneous
  Country: US (occurrence: None)
  Receive Date: 20230512
  Receipt Date: 20230512
  Transmission Date: 20230721
  Serious: Yes (Other)
  Sender: FDA-Public Use
  Company Number: US-ROCHE-3348588

PATIENT
  Age: 52 Year
  Sex: Female
  Weight: 54.026 kg

DRUGS (1)
  1. XOLAIR [Suspect]
     Active Substance: OMALIZUMAB
     Indication: Product used for unknown indication
     Route: 058

REACTIONS (1)
  - Anaphylactic reaction [Unknown]

NARRATIVE: CASE EVENT DATE: 20230420
